FAERS Safety Report 7000226-7 (Version None)
Quarter: 2010Q3

REPORT INFORMATION
  Report Type: 
  Country: None (occurrence: None)
  Receive Date: 20100920
  Receipt Date: 20100412
  Transmission Date: 20110219
  Serious: Yes (Hospitalization)
  Sender: FDA-Public Use
  Company Number: US-ASTRAZENECA-2009SE12210

PATIENT
  Sex: Male

DRUGS (4)
  1. SEROQUEL [Suspect]
     Route: 048
     Dates: start: 20040430
  2. CELEXA [Concomitant]
     Dates: start: 20020129
  3. WELLBUTRIN [Concomitant]
     Dates: start: 20030911
  4. HYDROCODONE BITARTRATE AND ACETAMINOPHEN [Concomitant]
     Dosage: 10-325 MG
     Dates: start: 20040110

REACTIONS (1)
  - DIABETES MELLITUS [None]
